FAERS Safety Report 19226666 (Version 2)
Quarter: 2021Q2

REPORT INFORMATION
  Report Type: Spontaneous
  Country: US (occurrence: US)
  Receive Date: 20210506
  Receipt Date: 20210607
  Transmission Date: 20210717
  Serious: Yes (Hospitalization)
  Sender: FDA-Public Use
  Company Number: US-EMD SERONO-7078565

PATIENT
  Age: 39 Year
  Sex: Female
  Weight: 52 kg

DRUGS (1)
  1. REBIF [Suspect]
     Active Substance: INTERFERON BETA-1A
     Indication: MULTIPLE SCLEROSIS
     Route: 058
     Dates: start: 20030224

REACTIONS (8)
  - Depressed mood [Recovering/Resolving]
  - Seizure [Recovered/Resolved]
  - Vertigo [Unknown]
  - Arthritis [Unknown]
  - Dizziness [Not Recovered/Not Resolved]
  - Concussion [Unknown]
  - Dysphemia [Unknown]
  - Injection site pain [Unknown]

NARRATIVE: CASE EVENT DATE: 200303
